FAERS Safety Report 10841294 (Version 2)
Quarter: 2015Q1

REPORT INFORMATION
  Report Type: Spontaneous
  Country: GB (occurrence: GB)
  Receive Date: 20150220
  Receipt Date: 20150307
  Transmission Date: 20150721
  Serious: Yes (Other)
  Sender: FDA-Public Use
  Company Number: GB-ACCORD-028751

PATIENT
  Age: 50 Year
  Sex: Male

DRUGS (2)
  1. AMITRYPTYLINE ACCORD [Suspect]
     Active Substance: AMITRIPTYLINE
     Indication: PRODUCT USED FOR UNKNOWN INDICATION
     Dosage: AT NIGHT
     Route: 048
     Dates: start: 20141230
  2. VENTOLIN [Concomitant]
     Active Substance: ALBUTEROL SULFATE
     Indication: ASTHMA
     Dosage: VENTOLIN EVOHALER AS NEEDED
     Route: 055

REACTIONS (2)
  - Product substitution issue [Unknown]
  - Asthma [Recovered/Resolved]

NARRATIVE: CASE EVENT DATE: 20141230
